FAERS Safety Report 22186155 (Version 1)
Quarter: 2023Q2

REPORT INFORMATION
  Report Type: Spontaneous
  Country: US (occurrence: None)
  Receive Date: 20230406
  Receipt Date: 20230406
  Transmission Date: 20230722
  Serious: Yes (Hospitalization)
  Sender: FDA-Public Use
  Company Number: None

PATIENT
  Age: 42 Year
  Sex: Female

DRUGS (2)
  1. DICLOFENAC POTASSIUM [Suspect]
     Active Substance: DICLOFENAC POTASSIUM
     Indication: Paralysis
     Dosage: FREQUENCY : TWICE A DAY;?
     Route: 048
     Dates: start: 20190910
  2. KEVEYIS [Concomitant]
     Active Substance: DICHLORPHENAMIDE

REACTIONS (6)
  - Hot flush [None]
  - Dizziness [None]
  - Loss of consciousness [None]
  - Dropped head syndrome [None]
  - Sensory disturbance [None]
  - Transient ischaemic attack [None]

NARRATIVE: CASE EVENT DATE: 20230406
